FAERS Safety Report 8257724-8 (Version None)
Quarter: 2012Q2

REPORT INFORMATION
  Report Type: 
  Country: None (occurrence: None)
  Receive Date: 20120404
  Receipt Date: 20120321
  Transmission Date: 20120825
  Serious: Yes (Other)
  Sender: FDA-Public Use
  Company Number: BR-AMGEN-BRASP2012019012

PATIENT
  Age: 42 Year
  Sex: Female
  Weight: 89 kg

DRUGS (4)
  1. ENBREL [Suspect]
     Indication: PSORIATIC ARTHROPATHY
     Dosage: 50 MG, WEEKLY
     Route: 058
     Dates: start: 20090201
  2. CAPTOPRIL [Concomitant]
     Dosage: UNK
  3. FLUOXETINE [Concomitant]
     Indication: RELAXATION THERAPY
     Dosage: UNK
  4. METFORMIN HCL [Concomitant]
     Dosage: UNK

REACTIONS (6)
  - BLOOD GLUCOSE INCREASED [None]
  - APPLICATION SITE ERYTHEMA [None]
  - APPLICATION SITE PRURITUS [None]
  - APPLICATION SITE MASS [None]
  - DIABETES MELLITUS [None]
  - APPLICATION SITE PAIN [None]
